FAERS Safety Report 7423027-4 (Version None)
Quarter: 2011Q2

REPORT INFORMATION
  Report Type: 
  Country: None (occurrence: None)
  Receive Date: 20110414
  Receipt Date: 20110414
  Transmission Date: 20111010
  Serious: Yes (Hospitalization)
  Sender: FDA-Public Use
  Company Number: None

PATIENT
  Sex: Female
  Weight: 68.8 kg

DRUGS (2)
  1. REVLIMID [Suspect]
     Dosage: 25 MG QD PO
     Route: 048
  2. AZACITIDINE [Suspect]
     Indication: ACUTE MYELOID LEUKAEMIA
     Dosage: 75 MG/M2 QD IV
     Route: 042

REACTIONS (8)
  - RETICULOCYTE COUNT INCREASED [None]
  - ASTHENIA [None]
  - PRESYNCOPE [None]
  - PLATELET COUNT DECREASED [None]
  - HAEMOGLOBIN DECREASED [None]
  - DYSPNOEA [None]
  - COUGH [None]
  - PETECHIAE [None]
